FAERS Safety Report 19372105 (Version 2)
Quarter: 2021Q4

REPORT INFORMATION
  Report Type: Spontaneous
  Country: US (occurrence: US)
  Receive Date: 20210604
  Receipt Date: 20211115
  Transmission Date: 20220303
  Serious: Yes (Life-Threatening, Hospitalization)
  Sender: FDA-Public Use
  Company Number: US-JNJFOC-20210325803

PATIENT
  Age: 45 Year
  Sex: Male

DRUGS (1)
  1. ACETAMINOPHEN [Suspect]
     Active Substance: ACETAMINOPHEN
     Indication: Product used for unknown indication
     Dosage: INGESTION OF AN UNDETERMINED AMOUNT?ADDITIONAL INFO: OVERDOSE
     Route: 048

REACTIONS (5)
  - Blood pH decreased [Recovering/Resolving]
  - Blood bicarbonate decreased [Recovering/Resolving]
  - Intentional overdose [Unknown]
  - Vomiting [Recovered/Resolved]
  - Postictal state [Recovered/Resolved]
